FAERS Safety Report 7941038-7 (Version None)
Quarter: 2011Q4

REPORT INFORMATION
  Report Type: 
  Country: None (occurrence: None)
  Receive Date: 20111128
  Receipt Date: 20111116
  Transmission Date: 20120403
  Serious: Yes (Hospitalization)
  Sender: FDA-Public Use
  Company Number: US-US-EMD SERONO, INC.-7096660

PATIENT
  Sex: Female
  Weight: 83 kg

DRUGS (5)
  1. LEXAPRO [Concomitant]
     Indication: ANXIETY
  2. IBUPROFEN (ADVIL) [Concomitant]
     Indication: PREMEDICATION
  3. REBIF [Suspect]
     Indication: MULTIPLE SCLEROSIS
     Route: 058
     Dates: start: 20071013
  4. ORTHO-NOVUM 7/7/7-21 [Concomitant]
     Indication: CONTRACEPTION
  5. METFORMIN HCL [Concomitant]
     Indication: GLUCOSE TOLERANCE IMPAIRED

REACTIONS (4)
  - PNEUMONIA [None]
  - URINARY TRACT INFECTION [None]
  - INJECTION SITE ERYTHEMA [None]
  - ILEITIS [None]
